FAERS Safety Report 6635912-1 (Version None)
Quarter: 2010Q1

REPORT INFORMATION
  Report Type: 
  Country: None (occurrence: None)
  Receive Date: 20100311
  Receipt Date: 20100223
  Transmission Date: 20100710
  Serious: Yes (Other)
  Sender: FDA-Public Use
  Company Number: 20100085

PATIENT
  Sex: Female

DRUGS (2)
  1. VENOFER [Suspect]
     Indication: IRON DEFICIENCY
     Dosage: 500 MG IN 1000ML NACL 2 HOUR INTRAVENOUS DRIP
     Route: 041
     Dates: start: 20091221, end: 20091221
  2. ANTIBIOTICS [Concomitant]

REACTIONS (4)
  - CIRCULATORY COLLAPSE [None]
  - FEELING ABNORMAL [None]
  - MIGRAINE [None]
  - UNEVALUABLE EVENT [None]
